FAERS Safety Report 15611610 (Version 1)
Quarter: 2018Q4

REPORT INFORMATION
  Report Type: Spontaneous
  Country: IN (occurrence: IN)
  Receive Date: 20181113
  Receipt Date: 20181113
  Transmission Date: 20190205
  Serious: Yes (Hospitalization, Other)
  Sender: FDA-Public Use
  Company Number: IN-TORRENT-00001964

PATIENT
  Age: 72 Year
  Sex: Male
  Weight: 68 kg

DRUGS (16)
  1. ISOFLURANE. [Interacting]
     Active Substance: ISOFLURANE
     Indication: ANAESTHESIA
     Dosage: UNKNOWN
  2. FENTANYL. [Concomitant]
     Active Substance: FENTANYL
     Indication: PREMEDICATION
     Dosage: UNKNOWN
  3. NITROUS OXIDE. [Interacting]
     Active Substance: NITROUS OXIDE
     Indication: ANAESTHESIA
     Dosage: UNKNOWN
  4. CRYSTALLOID [Concomitant]
     Active Substance: UNSPECIFIED INGREDIENT
     Indication: HAEMORRHAGE
     Dosage: UNKNOWN
     Route: 042
  5. ADRENALINE [Concomitant]
     Active Substance: EPINEPHRINE
     Indication: PRODUCT USED FOR UNKNOWN INDICATION
     Dosage: ESCALATED TO MAXIMUM (20 MCG/MIN)
  6. DOPAMINE [Concomitant]
     Active Substance: DOPAMINE\DOPAMINE HYDROCHLORIDE
     Indication: PRODUCT USED FOR UNKNOWN INDICATION
     Dosage: ESCALATED TO MAXIMUM (20 MCG/MIN)
  7. AMLODIPINE [Interacting]
     Active Substance: AMLODIPINE BESYLATE
     Indication: HYPERTENSION
     Dosage: UNKNOWN
  8. OXYGEN. [Concomitant]
     Active Substance: OXYGEN
     Indication: PRODUCT USED FOR UNKNOWN INDICATION
     Dosage: UNKNOWN
  9. GLYCOPYRROLATE. [Concomitant]
     Active Substance: GLYCOPYRROLATE
     Indication: PREMEDICATION
     Dosage: UNKNOWN
  10. ONDANSETRON [Concomitant]
     Active Substance: ONDANSETRON
     Indication: PREMEDICATION
     Dosage: UNKNOWN
  11. PROPOFOL. [Interacting]
     Active Substance: PROPOFOL
     Indication: ANAESTHESIA
     Dosage: UNKNOWN
     Route: 042
  12. VECURONIUM [Concomitant]
     Active Substance: VECURONIUM BROMIDE
     Indication: PRODUCT USED FOR UNKNOWN INDICATION
     Dosage: UNKNOWN
     Route: 042
  13. LACTATED RINGERS SOLUTION [Concomitant]
     Active Substance: CALCIUM CHLORIDE\POTASSIUM CHLORIDE\SODIUM CHLORIDE\SODIUM LACTATE
     Indication: PRODUCT USED FOR UNKNOWN INDICATION
     Dosage: UNKNOWN
     Route: 040
  14. METOPROLOL. [Suspect]
     Active Substance: METOPROLOL
     Indication: HYPERTENSION
     Dosage: UNKNOWN;  METOPROLOL-XL-50 MG
  15. MORPHINE [Concomitant]
     Active Substance: MORPHINE
     Indication: PRODUCT USED FOR UNKNOWN INDICATION
     Dosage: UNKNOWN
  16. NORADRENALINE [Concomitant]
     Active Substance: NOREPINEPHRINE
     Indication: PRODUCT USED FOR UNKNOWN INDICATION
     Dosage: ESCALATED TO MAXIMUM (20 MCG/MIN)

REACTIONS (10)
  - Electrocardiogram abnormal [Unknown]
  - Hypothermia [Recovered/Resolved]
  - Vein collapse [Recovered/Resolved]
  - Toxicity to various agents [Unknown]
  - Drug interaction [Unknown]
  - Urine output decreased [Recovered/Resolved]
  - Lactic acidosis [Unknown]
  - Metabolic acidosis [Unknown]
  - Hypoperfusion [Unknown]
  - Hypotension [Recovering/Resolving]
